FAERS Safety Report 4575322-4 (Version None)
Quarter: 2005Q1

REPORT INFORMATION
  Report Type: 
  Country: None (occurrence: None)
  Receive Date: 20050209
  Receipt Date: 20041220
  Transmission Date: 20050727
  Serious: Yes (Death, Hospitalization)
  Sender: FDA-Public Use
  Company Number: GB-JNJFOC-20041004970

PATIENT
  Sex: Male

DRUGS (9)
  1. REMICADE [Suspect]
     Indication: RHEUMATOID ARTHRITIS
     Route: 042
  2. SULFASALAZINE [Concomitant]
  3. PREDNISOLONE [Concomitant]
  4. METHOTREXATE [Concomitant]
     Dates: end: 20040507
  5. DIDRONEL [Concomitant]
  6. LOSEC [Concomitant]
  7. FOLIC ACID [Concomitant]
  8. COLIFOAM [Concomitant]
  9. LEFLUNOMIDE [Concomitant]

REACTIONS (4)
  - DYSPNOEA [None]
  - EPISTAXIS [None]
  - MYOCARDIAL INFARCTION [None]
  - PYREXIA [None]
